FAERS Safety Report 22257319 (Version 1)
Quarter: 2023Q2

REPORT INFORMATION
  Report Type: Other
  Country: US (occurrence: US)
  Receive Date: 20230427
  Receipt Date: 20230427
  Transmission Date: 20230721
  Serious: No
  Sender: FDA-Public Use
  Company Number: US-GBT-021890

PATIENT
  Age: 39 Year
  Sex: Female
  Weight: 71.6 kg

DRUGS (4)
  1. OXBRYTA [Suspect]
     Active Substance: VOXELOTOR
     Indication: Sickle cell disease
     Route: 048
     Dates: start: 20230415
  2. MORPHINE [Concomitant]
     Active Substance: MORPHINE
  3. HYDROXYUREA [Concomitant]
     Active Substance: HYDROXYUREA
  4. FOLIC ACID [Concomitant]
     Active Substance: FOLIC ACID

REACTIONS (1)
  - Diarrhoea [Not Recovered/Not Resolved]

NARRATIVE: CASE EVENT DATE: 20230416
